FAERS Safety Report 6067114-4 (Version None)
Quarter: 2009Q1

REPORT INFORMATION
  Report Type: 
  Country: None (occurrence: None)
  Receive Date: 20090204
  Receipt Date: 20090204
  Transmission Date: 20090719
  Serious: Yes (Life-Threatening, Other)
  Sender: FDA-Public Use
  Company Number: None

PATIENT
  Age: 63 Year
  Sex: Female
  Weight: 72.5755 kg

DRUGS (1)
  1. ROPINIROLE [Suspect]
     Indication: RESTLESS LEGS SYNDROME
     Dosage: 0.5 MG 2TABS DAILY PO
     Route: 048
     Dates: start: 20081101, end: 20090202

REACTIONS (5)
  - ABNORMAL BEHAVIOUR [None]
  - AMNESIA [None]
  - DYSARTHRIA [None]
  - GAIT DISTURBANCE [None]
  - HALLUCINATION, VISUAL [None]
